FAERS Safety Report 8992946 (Version 3)
Quarter: 2013Q1

REPORT INFORMATION
  Report Type: Spontaneous
  Country: BR (occurrence: BR)
  Receive Date: 20130102
  Receipt Date: 20130208
  Transmission Date: 20140127
  Serious: Yes (Hospitalization)
  Sender: FDA-Public Use
  Company Number: PHHY2012BR121418

PATIENT
  Sex: Female
  Weight: 65 kg

DRUGS (13)
  1. EXELON PATCH [Suspect]
     Indication: DEMENTIA ALZHEIMER^S TYPE
     Dosage: 4.6 MG, DAILY
     Route: 062
  2. EXELON PATCH [Suspect]
     Dosage: 13.5 MG, DAILY
     Route: 062
  3. EXELON PATCH [Suspect]
     Dosage: 4.6 MG, DAILY
     Route: 062
  4. EXELON PATCH [Suspect]
     Dosage: 9.5 MG, DAILY
     Route: 062
  5. DIMETHICONE [Concomitant]
     Indication: FLATULENCE
     Dosage: 1 DF, BID
     Route: 048
  6. OMEPRAZOLE [Concomitant]
     Indication: ABDOMINAL DISCOMFORT
     Dosage: 1 DF, BID
     Route: 048
  7. OTILONIUM BROMIDE [Concomitant]
     Dosage: 1 DF, DAILY
     Route: 048
  8. GERIATON [Concomitant]
     Dosage: 1 DF, DAILY
     Route: 048
  9. AAS [Concomitant]
     Indication: BLOOD VISCOSITY INCREASED
     Dosage: 1 DF, DAILY
     Route: 048
  10. RIVOTRIL [Concomitant]
     Indication: SLEEP DISORDER
     Dosage: 1 DF, DAILY
     Route: 048
  11. EBIX [Concomitant]
     Indication: DEMENTIA ALZHEIMER^S TYPE
     Dosage: 1 DF, BID
     Route: 048
  12. CITALOPRAM [Concomitant]
     Indication: DEMENTIA ALZHEIMER^S TYPE
     Dosage: 1 DF, BID
     Route: 048
  13. FOLIFER [Concomitant]
     Indication: ANAEMIA
     Dosage: 1 DF, DAILY
     Route: 048

REACTIONS (6)
  - Sepsis [Recovered/Resolved]
  - Pyrexia [Recovered/Resolved]
  - Asthenia [Recovered/Resolved]
  - Anaemia [Recovered/Resolved]
  - Syncope [Recovering/Resolving]
  - Vomiting [Recovered/Resolved]
